FAERS Safety Report 24978904 (Version 2)
Quarter: 2025Q2

REPORT INFORMATION
  Report Type: Spontaneous
  Country: US (occurrence: US)
  Receive Date: 20250218
  Receipt Date: 20250407
  Transmission Date: 20250717
  Serious: No
  Sender: ROCHE
  Company Number: US-ROCHE-10000203324

PATIENT
  Sex: Male
  Weight: 61.69 kg

DRUGS (19)
  1. ERIVEDGE [Suspect]
     Active Substance: VISMODEGIB
     Indication: Basal cell carcinoma
     Route: 048
  2. ERIVEDGE [Suspect]
     Active Substance: VISMODEGIB
     Route: 048
  3. OMNITROPE SOC 10MG/1.5ML [Concomitant]
  4. VITAMINE B12 LIQ 3000MCG/M [Concomitant]
  5. VITAMINE B6 TAB 250 MCG [Concomitant]
  6. VITAMINE D3 TBD 125 MCG [Concomitant]
  7. ZINC TAB 100MG [Concomitant]
  8. VITAMINE D LIQ 10MCG/ML [Concomitant]
  9. CARVEDILOL TAB 12.5 MG [Concomitant]
  10. ELIQUIS [Concomitant]
     Active Substance: APIXABAN
  11. OXYCODONE-AC TAB 10-325MG [Concomitant]
  12. TAMSULOSlN H CAP 0.4MG [Concomitant]
  13. TIZANIDINE H TAB 4MG [Concomitant]
  14. OMNITROPE INJ  10/1.5ML [Concomitant]
  15. ANASTROZOLE [Concomitant]
     Active Substance: ANASTROZOLE
  16. CLlNDAMYCIN CAP 300MG [Concomitant]
  17. Dicycloamine tab 20 mg [Concomitant]
  18. hydrocodon/ acetoaminophen [Concomitant]
  19. Chlord/clidi cap-2.5 mg [Concomitant]

REACTIONS (8)
  - Alopecia [Not Recovered/Not Resolved]
  - Pain [Not Recovered/Not Resolved]
  - Fatigue [Not Recovered/Not Resolved]
  - Weight decreased [Not Recovered/Not Resolved]
  - Ageusia [Not Recovered/Not Resolved]
  - Depression [Not Recovered/Not Resolved]
  - Asthenia [Not Recovered/Not Resolved]
  - Decreased appetite [Not Recovered/Not Resolved]
